FAERS Safety Report 19082452 (Version 1)
Quarter: 2021Q2

REPORT INFORMATION
  Report Type: Spontaneous
  Country: TW (occurrence: TW)
  Receive Date: 20210401
  Receipt Date: 20210401
  Transmission Date: 20210717
  Serious: Yes (Other)
  Sender: FDA-Public Use
  Company Number: TW-LUPIN PHARMACEUTICALS INC.-2021-03988

PATIENT
  Age: 76 Year
  Sex: Male

DRUGS (4)
  1. ENTECAVIR. [Concomitant]
     Active Substance: ENTECAVIR
     Indication: PROPHYLAXIS
     Dosage: UNK (ADMINISTERED PRIOR TO IMMUNOSUPPRESSIVE THERAPY)
     Route: 065
  2. CYCLOPHOSPHAMIDE. [Suspect]
     Active Substance: CYCLOPHOSPHAMIDE
     Indication: WALDENSTROM^S MACROGLOBULINAEMIA
     Dosage: 200 MILLIGRAM, QD
     Route: 048
  3. METHYLPREDNISOLONE. [Suspect]
     Active Substance: METHYLPREDNISOLONE
     Indication: WALDENSTROM^S MACROGLOBULINAEMIA
     Dosage: 80 MILLIGRAM ADMINISTERED ONE DOSE
     Route: 065
  4. RITUXIMAB. [Suspect]
     Active Substance: RITUXIMAB
     Indication: WALDENSTROM^S MACROGLOBULINAEMIA
     Dosage: 600 MILLIGRAM ADMINISTERED ONE DOSE
     Route: 065

REACTIONS (1)
  - Drug ineffective [Unknown]
